FAERS Safety Report 14777475 (Version 1)
Quarter: 2018Q2

REPORT INFORMATION
  Report Type: Spontaneous
  Country: FR (occurrence: FR)
  Receive Date: 20180419
  Receipt Date: 20180419
  Transmission Date: 20180711
  Serious: Yes (Hospitalization, Other)
  Sender: FDA-Public Use
  Company Number: FR-MERCK KGAA-2046026

PATIENT
  Age: 51 Year
  Sex: Female

DRUGS (1)
  1. NOVOTHYROX [Suspect]
     Active Substance: LEVOTHYROXINE SODIUM
     Indication: PRODUCT USED FOR UNKNOWN INDICATION

REACTIONS (26)
  - Mental fatigue [None]
  - Drug ineffective [None]
  - Loss of libido [None]
  - Blood iron increased [None]
  - Loss of personal independence in daily activities [None]
  - Headache [Recovered/Resolved]
  - Nausea [Recovered/Resolved]
  - C-reactive protein increased [None]
  - Decreased appetite [None]
  - Muscle spasms [None]
  - Blood thyroid stimulating hormone increased [None]
  - Thyroxine free increased [None]
  - Suicidal ideation [None]
  - Insomnia [None]
  - Anxiety [Recovered/Resolved]
  - Social avoidant behaviour [None]
  - Fatigue [None]
  - Dyspnoea [Recovered/Resolved]
  - Blindness [None]
  - Tinnitus [Recovered/Resolved]
  - Alopecia [Recovered/Resolved]
  - Nail discolouration [None]
  - Myalgia [None]
  - Aggression [None]
  - Depressed mood [None]
  - Depression [None]

NARRATIVE: CASE EVENT DATE: 20170309
